FAERS Safety Report 17030022 (Version 2)
Quarter: 2019Q4

REPORT INFORMATION
  Report Type: Spontaneous
  Country: AR (occurrence: AR)
  Receive Date: 20191114
  Receipt Date: 20191202
  Transmission Date: 20200122
  Serious: Yes (Other)
  Sender: FDA-Public Use
  Company Number: AR-ROCHE-2462310

PATIENT
  Age: 67 Year
  Sex: Female

DRUGS (7)
  1. MABTHERA [Suspect]
     Active Substance: RITUXIMAB
     Indication: B-CELL LYMPHOMA
     Route: 065
  2. BENDAMUSTINE [Concomitant]
     Active Substance: BENDAMUSTINE
     Indication: B-CELL LYMPHOMA
     Route: 065
  3. BENDAMUSTINE [Concomitant]
     Active Substance: BENDAMUSTINE
     Route: 065
  4. PREDNISONE. [Concomitant]
     Active Substance: PREDNISONE
     Indication: B-CELL LYMPHOMA
  5. CYCLOPHOSPHAMIDE. [Concomitant]
     Active Substance: CYCLOPHOSPHAMIDE
     Indication: B-CELL LYMPHOMA
  6. VINCRISTINE [Concomitant]
     Active Substance: VINCRISTINE
     Indication: B-CELL LYMPHOMA
  7. GAZYVA [Suspect]
     Active Substance: OBINUTUZUMAB
     Indication: B-CELL LYMPHOMA
     Route: 065

REACTIONS (3)
  - Hypogammaglobulinaemia [Unknown]
  - Febrile neutropenia [Unknown]
  - Haematotoxicity [Unknown]
